FAERS Safety Report 24223094 (Version 1)
Quarter: 2024Q3

REPORT INFORMATION
  Report Type: Spontaneous
  Country: US (occurrence: None)
  Receive Date: 20240816
  Receipt Date: 20240816
  Transmission Date: 20241016
  Serious: No
  Sender: Public
  Company Number: None

PATIENT
  Sex: Female

DRUGS (5)
  1. WINREVAIR [Suspect]
     Active Substance: SOTATERCEPT-CSRK
     Indication: Pulmonary arterial hypertension
     Dosage: OTHER FREQUENCY : EVERY3WEEKS ;?
     Dates: start: 202407
  2. UPTRAVI [Concomitant]
  3. LETAIRIS [Concomitant]
  4. AMBRISENTAN [Concomitant]
  5. TADALAFIL [Concomitant]

REACTIONS (1)
  - Headache [None]
